FAERS Safety Report 4373334-7 (Version None)
Quarter: 2004Q2

REPORT INFORMATION
  Report Type: 
  Country: None (occurrence: None)
  Receive Date: 20040603
  Receipt Date: 20040524
  Transmission Date: 20050107
  Serious: Yes (Hospitalization)
  Sender: FDA-Public Use
  Company Number: 200403564

PATIENT
  Age: 18 Month
  Sex: Female
  Weight: 11 kg

DRUGS (1)
  1. ACETAMINOPHEN [Suspect]
     Dosage: 10 G ONCE PO
     Route: 048

REACTIONS (7)
  - ACTIVATED PARTIAL THROMBOPLASTIN TIME PROLONGED [None]
  - ASPARTATE AMINOTRANSFERASE INCREASED [None]
  - HYPOTENSION [None]
  - MENTAL STATUS CHANGES [None]
  - METABOLIC ACIDOSIS [None]
  - OVERDOSE [None]
  - RESPIRATORY FAILURE [None]
